FAERS Safety Report 5142982-9 (Version None)
Quarter: 2006Q4

REPORT INFORMATION
  Report Type: 
  Country: None (occurrence: None)
  Receive Date: 20061103
  Receipt Date: 20061023
  Transmission Date: 20070319
  Serious: Yes (Other)
  Sender: FDA-Public Use
  Company Number: BR-JNJFOC-20061005809

PATIENT
  Age: 84 Year
  Sex: Female
  Weight: 60 kg

DRUGS (24)
  1. REMINYL [Suspect]
     Indication: DEMENTIA ALZHEIMER'S TYPE
     Route: 048
  2. REMINYL ER [Suspect]
     Indication: DEMENTIA ALZHEIMER'S TYPE
     Route: 048
  3. AMIODARONE HCL [Concomitant]
     Indication: CARDIAC DISORDER
     Route: 048
  4. PURAN T4 [Concomitant]
     Indication: THYROXINE INCREASED
     Route: 048
  5. RIVOTRIL [Concomitant]
     Indication: STRESS
     Route: 048
  6. SIMVASTATIN [Concomitant]
     Indication: BLOOD CHOLESTEROL INCREASED
     Route: 048
  7. FLUOXETINE [Concomitant]
     Route: 048
  8. FLUOXETINE [Concomitant]
     Route: 048
  9. FLUOXETINE [Concomitant]
     Route: 048
  10. GINKGO BILOBA [Concomitant]
     Indication: CARDIOVASCULAR DISORDER
  11. VITAMIN E [Concomitant]
     Route: 048
  12. ASCORBIC ACID [Concomitant]
     Route: 048
  13. CALCIUM CITRATE [Concomitant]
  14. VITAMIN A [Concomitant]
  15. VITAMIN D3 [Concomitant]
  16. SELENIUM SULFIDE [Concomitant]
  17. FOLIC ACID [Concomitant]
  18. MAGNESIUM ASPARTATE [Concomitant]
  19. VITAMIN B6 [Concomitant]
  20. VITAMIN B-12 [Concomitant]
  21. ZINC [Concomitant]
  22. RUTIN [Concomitant]
  23. OMEPRAZOLE [Concomitant]
     Indication: FLATULENCE
     Route: 048
  24. TICLOPIDINE [Concomitant]
     Indication: ISCHAEMIA
     Route: 048

REACTIONS (6)
  - ABNORMAL BEHAVIOUR [None]
  - APATHY [None]
  - FLATULENCE [None]
  - ISCHAEMIA [None]
  - LYMPHOMA [None]
  - WEIGHT DECREASED [None]
